FAERS Safety Report 5745048-X (Version None)
Quarter: 2008Q2

REPORT INFORMATION
  Report Type: 
  Country: None (occurrence: None)
  Receive Date: 20080521
  Receipt Date: 20080509
  Transmission Date: 20081010
  Serious: Yes (Other)
  Sender: FDA-Public Use
  Company Number: FI-ROCHE-563826

PATIENT
  Age: 70 Year
  Sex: Female

DRUGS (4)
  1. BONIVA [Suspect]
     Indication: OSTEOPOROSIS
     Dosage: STOP DATE: 2008
     Route: 048
  2. CORTISONE [Concomitant]
     Indication: RHEUMATOID ARTHRITIS
     Dosage: UNSPECIFIED CORTISONE TREATMENT.
     Route: 048
  3. TREXAN (METHOTREXATE) [Concomitant]
     Indication: RHEUMATOID ARTHRITIS
     Route: 048
  4. FOSAMAX [Concomitant]
     Dosage: TAKEN FOR MANY YEARS.

REACTIONS (2)
  - ABSCESS [None]
  - OSTEONECROSIS [None]
